FAERS Safety Report 8565189 (Version 2)
Quarter: 2012Q4

REPORT INFORMATION
  Report Type: 
  Country: US (occurrence: US)
  Receive Date: 20120516
  Receipt Date: 20121015
  Transmission Date: 20130627
  Serious: Yes (Hospitalization, Other)
  Sender: FDA-Public Use
  Company Number: US-BAYER-2012-047575

PATIENT
  Age: 20 Year
  Sex: Female
  Weight: 55.78 kg

DRUGS (10)
  1. YAZ [Suspect]
     Indication: ACNE
     Dosage: UNK
     Route: 048
     Dates: start: 20090712, end: 20120204
  2. YAZ [Suspect]
     Indication: PREMENSTRUAL SYNDROME
  3. YAZ [Suspect]
     Indication: MENSTRUATION IRREGULAR
  4. NEXIUM [Concomitant]
     Indication: ABDOMINAL PAIN UPPER
     Dosage: 40 mg, QD
     Route: 048
     Dates: start: 20111228, end: 20120106
  5. PRILOSEC [Concomitant]
     Indication: ABDOMINAL PAIN UPPER
  6. TUMS [CALCIUM CARBONATE,MAGNESIUM CARBONATE,MAGNESIUM TRISILICATE] [Concomitant]
     Indication: GASTRIC DISORDER
     Dosage: 2TBSP; PRN
     Route: 048
     Dates: start: 20111228, end: 20120106
  7. MAALOX [Concomitant]
     Indication: GASTRIC DISORDER
     Dosage: 2 TBSP PRN
     Route: 048
     Dates: start: 20111228, end: 20120110
  8. MINOCYCLINE [Concomitant]
     Indication: ACNE
     Dosage: UNK UNK, QD
     Dates: start: 20080918
  9. PEPTO BISMOL [Concomitant]
     Indication: GASTRIC DISORDER
     Dosage: 2 Tablespoons
     Dates: start: 201112
  10. NAPROXEN [Concomitant]
     Indication: DYSMENORRHOEA
     Dosage: 550 mg, UNK
     Dates: start: 20090611, end: 20111227

REACTIONS (10)
  - Vomiting [None]
  - Injury [None]
  - Pain [None]
  - General physical health deterioration [None]
  - Anxiety [None]
  - Emotional distress [None]
  - Gallbladder disorder [None]
  - Biliary dyskinesia [None]
  - Abdominal pain [None]
  - Nausea [None]
